FAERS Safety Report 5294836-5 (Version None)
Quarter: 2007Q2

REPORT INFORMATION
  Report Type: 
  Country: None (occurrence: None)
  Receive Date: 20070412
  Receipt Date: 20070410
  Transmission Date: 20071010
  Serious: Yes (Death)
  Sender: FDA-Public Use
  Company Number: FR-JNJFOC-20070400751

PATIENT
  Age: 71 Year
  Sex: Female

DRUGS (19)
  1. OFLOCET [Suspect]
     Indication: SEPSIS
     Route: 048
     Dates: start: 20061004, end: 20061014
  2. ARANESP [Suspect]
     Indication: ANAEMIA
     Route: 058
  3. NEXIUM [Suspect]
     Indication: DRUG USE FOR UNKNOWN INDICATION
     Route: 048
  4. MINISINTROM [Suspect]
     Indication: DRUG USE FOR UNKNOWN INDICATION
     Route: 048
  5. NEURONTIN [Suspect]
     Indication: NEUROPATHY PERIPHERAL
     Route: 048
  6. LASIX [Concomitant]
     Indication: CARDIAC FAILURE
     Route: 048
  7. COZAAR [Concomitant]
     Route: 065
  8. FLUDARABIN PHOSPHATE [Concomitant]
     Indication: LEUKAEMIA
     Route: 065
  9. LEVOTHYROXINE SODIUM [Concomitant]
     Route: 048
  10. BACTRIM [Concomitant]
     Route: 065
  11. LODALES [Concomitant]
     Route: 065
  12. VALACYCLOVIR HCL [Concomitant]
     Route: 065
  13. INIPOMP [Concomitant]
     Route: 065
  14. ORGAMETRIL [Concomitant]
     Route: 065
  15. GAVISCON [Concomitant]
     Route: 065
  16. CYCLOPHOSPHAMIDE NOS [Concomitant]
     Indication: LEUKAEMIA
     Route: 065
  17. CEFOTAXIME [Concomitant]
     Indication: SEPSIS
     Route: 065
  18. AMIKACIN [Concomitant]
     Route: 065
  19. GENTAMICIN [Concomitant]
     Route: 065

REACTIONS (2)
  - DRUG RASH WITH EOSINOPHILIA AND SYSTEMIC SYMPTOMS [None]
  - TOXIC EPIDERMAL NECROLYSIS [None]
